FAERS Safety Report 26188042 (Version 2)
Quarter: 2025Q4

REPORT INFORMATION
  Report Type: Spontaneous
  Country: EU (occurrence: EU)
  Receive Date: 20251222
  Receipt Date: 20251224
  Transmission Date: 20260117
  Serious: Yes (Hospitalization, Other)
  Sender: PFIZER
  Company Number: EU-PFIZER INC-PV202500148472

PATIENT
  Age: 51 Year
  Sex: Female

DRUGS (7)
  1. MEDROXYPROGESTERONE ACETATE [Suspect]
     Active Substance: MEDROXYPROGESTERONE ACETATE
     Indication: Menopausal symptoms
  2. MEDROXYPROGESTERONE ACETATE [Suspect]
     Active Substance: MEDROXYPROGESTERONE ACETATE
     Indication: Haemorrhage
  3. TRAZODONE [Suspect]
     Active Substance: TRAZODONE HYDROCHLORIDE
     Indication: Poor quality sleep
     Dosage: 50 MG
  4. TRAZODONE [Suspect]
     Active Substance: TRAZODONE HYDROCHLORIDE
     Indication: Menopausal symptoms
     Dosage: 75 MG, DAILY
  5. PREGABALIN [Suspect]
     Active Substance: PREGABALIN
     Indication: Menopausal symptoms
     Dosage: 150 MG, DAILY
  6. PREGABALIN [Suspect]
     Active Substance: PREGABALIN
     Dosage: 300 MG, DAILY
  7. ESTRIOL [Suspect]
     Active Substance: ESTRIOL
     Indication: Menopausal symptoms
     Dosage: 1 MG/G THREE TIMES WEEKLY
     Route: 067

REACTIONS (1)
  - Persistent genital arousal disorder [Recovered/Resolved]
